FAERS Safety Report 5794647-8 (Version None)
Quarter: 2008Q2

REPORT INFORMATION
  Report Type: 
  Country: None (occurrence: None)
  Receive Date: 20080627
  Receipt Date: 20080627
  Transmission Date: 20081010
  Serious: Yes (Hospitalization)
  Sender: FDA-Public Use
  Company Number: None

PATIENT
  Sex: Female
  Weight: 51.7101 kg

DRUGS (9)
  1. DUETACT [Suspect]
     Indication: DIABETES MELLITUS
     Dosage: PO, PRIOR TO ADMISSION
     Route: 048
  2. INDERAL [Concomitant]
  3. PRIMIDONE [Concomitant]
  4. XANAX [Concomitant]
  5. TRAZODONE HCL [Concomitant]
  6. CALCIUM WITH D [Concomitant]
  7. M.V.I. [Concomitant]
  8. ASPIRIN [Concomitant]
  9. SULAR [Concomitant]

REACTIONS (4)
  - ASTHENIA [None]
  - HYPERHIDROSIS [None]
  - HYPOGLYCAEMIA [None]
  - TREMOR [None]
